FAERS Safety Report 10409684 (Version 1)
Quarter: 2014Q3

REPORT INFORMATION
  Report Type: Spontaneous
  Country: US (occurrence: None)
  Receive Date: 20140825
  Receipt Date: 20140825
  Transmission Date: 20150326
  Serious: Yes (Life-Threatening, Hospitalization, Disabling)
  Sender: FDA-Public Use
  Company Number: None

PATIENT
  Age: 34 Year
  Sex: Male
  Weight: 111.13 kg

DRUGS (1)
  1. REMICADE [Suspect]
     Active Substance: INFLIXIMAB
     Indication: ANKYLOSING SPONDYLITIS
     Dosage: REMICADE Q6 WEEKS INTO A VEIN
     Route: 042
     Dates: start: 20051101, end: 20131220

REACTIONS (1)
  - Diffuse large B-cell lymphoma [None]

NARRATIVE: CASE EVENT DATE: 20140115
